FAERS Safety Report 4614152-1 (Version None)
Quarter: 2005Q1

REPORT INFORMATION
  Report Type: 
  Country: None (occurrence: None)
  Receive Date: 20050316
  Receipt Date: 20050228
  Transmission Date: 20050727
  Serious: Yes (Life-Threatening, Other)
  Sender: FDA-Public Use
  Company Number: GBS050316788

PATIENT
  Age: 50 Year
  Sex: Female

DRUGS (4)
  1. XIGRIS [Suspect]
     Indication: PNEUMONIA STAPHYLOCOCCAL
     Dosage: 24 UG/KG/HR
     Dates: start: 20050201
  2. HEPARIN [Concomitant]
  3. ENOXAPARIN SODIUM [Concomitant]
  4. PROSTACYCLIN [Concomitant]

REACTIONS (6)
  - ACTIVATED PARTIAL THROMBOPLASTIN TIME PROLONGED [None]
  - INTRAVENTRICULAR HAEMORRHAGE [None]
  - MYDRIASIS [None]
  - PERIPHERAL ISCHAEMIA [None]
  - PLATELET COUNT DECREASED [None]
  - PUPIL FIXED [None]
